FAERS Safety Report 23342431 (Version 1)
Quarter: 2023Q4

REPORT INFORMATION
  Report Type: Spontaneous
  Country: DE (occurrence: DE)
  Receive Date: 20231227
  Receipt Date: 20231227
  Transmission Date: 20240110
  Serious: Yes (Other)
  Sender: FDA-Public Use
  Company Number: DE-TEVA-VS-3137882

PATIENT
  Age: 61 Year

DRUGS (3)
  1. SULFAMETHOXAZOLE\TRIMETHOPRIM [Suspect]
     Active Substance: SULFAMETHOXAZOLE\TRIMETHOPRIM
     Indication: Cystitis noninfective
     Dosage: 800 MG/160 MG
     Route: 048
     Dates: start: 20231215, end: 20231219
  2. METFORMIN [Concomitant]
     Active Substance: METFORMIN HYDROCHLORIDE
  3. BROMELAINS\CHYMOTRYPSIN\LIPASE\PANCRELIPASE\PANCRELIPASE AMYLASE\PAPAI [Suspect]
     Active Substance: BROMELAINS\CHYMOTRYPSIN\LIPASE\PANCRELIPASE\PANCRELIPASE AMYLASE\PAPAIN\RUTIN\TRYPSIN
     Route: 065
     Dates: start: 202312

REACTIONS (5)
  - Tissue injury [Unknown]
  - Stomatitis [Unknown]
  - Glossodynia [Not Recovered/Not Resolved]
  - Tongue blistering [Unknown]
  - Oral discomfort [Unknown]

NARRATIVE: CASE EVENT DATE: 20231217
